FAERS Safety Report 5213148-9 (Version None)
Quarter: 2007Q1

REPORT INFORMATION
  Report Type: 
  Country: None (occurrence: None)
  Receive Date: 20070118
  Receipt Date: 20070118
  Transmission Date: 20070707
  Serious: Yes (Hospitalization)
  Sender: FDA-Public Use
  Company Number: None

PATIENT
  Sex: Female
  Weight: 45.3 kg

DRUGS (9)
  1. METHOTREXATE [Suspect]
     Dosage: 45 MG
  2. PEG-L-ASPARAGINASE (K-H) [Suspect]
     Dosage: 211500 UNIT
  3. CYCLOPHOSPHAMIDE [Suspect]
     Dosage: 1480 MG
  4. CYTARABINE [Suspect]
     Dosage: 880 MG
  5. DEXAMETHASONE [Suspect]
     Dosage: 196 MG
  6. DOXORUBICIN HYDROCHLORIDE [Suspect]
     Dosage: 105 MG
  7. LEUCOVORIN CALCIUM [Suspect]
     Dosage: 7.5 MG
  8. THIOGUANINE [Suspect]
  9. VINCRISTINE SULFATE [Suspect]
     Dosage: 6 MG

REACTIONS (20)
  - ANXIETY [None]
  - BRAIN OEDEMA [None]
  - CENTRAL NERVOUS SYSTEM LESION [None]
  - COGNITIVE DISORDER [None]
  - DECREASED APPETITE [None]
  - DRUG TOXICITY [None]
  - FACIAL PARESIS [None]
  - GAZE PALSY [None]
  - HEADACHE [None]
  - HEMIPARESIS [None]
  - MENTAL STATUS CHANGES [None]
  - MONOPARESIS [None]
  - MUSCULAR WEAKNESS [None]
  - NAUSEA [None]
  - NERVOUS SYSTEM DISORDER [None]
  - NUCLEAR MAGNETIC RESONANCE IMAGING BRAIN ABNORMAL [None]
  - ORAL INTAKE REDUCED [None]
  - SPEECH DISORDER [None]
  - VASCULITIS [None]
  - VOMITING [None]
